FAERS Safety Report 5348446-1 (Version None)
Quarter: 2007Q2

REPORT INFORMATION
  Report Type: 
  Country: None (occurrence: None)
  Receive Date: 20070606
  Receipt Date: 20070530
  Transmission Date: 20071010
  Serious: Yes (Other)
  Sender: FDA-Public Use
  Company Number: SI-PFIZER INC-2007041016

PATIENT
  Age: 78 Year
  Sex: Male
  Weight: 80 kg

DRUGS (6)
  1. FRAGMIN [Suspect]
     Indication: THROMBOSIS PROPHYLAXIS
     Dosage: DAILY DOSE:10000I.U.
     Route: 058
  2. DURAGESIC-100 [Concomitant]
     Route: 048
  3. SEVREDOL [Concomitant]
     Route: 058
  4. KETONAL [Concomitant]
     Dosage: TEXT:100MG/2ML
     Route: 058
  5. LENDACIN [Concomitant]
  6. TORECAN [Concomitant]
     Route: 054

REACTIONS (2)
  - DEEP VEIN THROMBOSIS [None]
  - DRUG INEFFECTIVE [None]
